FAERS Safety Report 7418295-9 (Version None)
Quarter: 2011Q2

REPORT INFORMATION
  Report Type: 
  Country: None (occurrence: None)
  Receive Date: 20110408
  Receipt Date: 20110329
  Transmission Date: 20111010
  Serious: Yes (Hospitalization)
  Sender: FDA-Public Use
  Company Number: 029112

PATIENT
  Sex: Male
  Weight: 47.2 kg

DRUGS (7)
  1. ACTONEL [Concomitant]
  2. CALCIUM D [Concomitant]
  3. NICODERM [Concomitant]
  4. MV [Concomitant]
  5. CERTOLIZUMAB PEGOL [Suspect]
     Indication: CROHN'S DISEASE
     Dosage: 400 MG 1X/4 WEEKS SUBCUTANEOUS
     Route: 058
     Dates: start: 20050127, end: 20110120
  6. CLARITIN-D [Concomitant]
  7. B-12 LATINO [Concomitant]

REACTIONS (13)
  - MUSCULOSKELETAL PAIN [None]
  - ANAEMIA [None]
  - HYPOMAGNESAEMIA [None]
  - RENAL FAILURE ACUTE [None]
  - HYPOKALAEMIA [None]
  - HYPOVOLAEMIA [None]
  - PLATELET COUNT DECREASED [None]
  - CHRONIC OBSTRUCTIVE PULMONARY DISEASE [None]
  - PLEURAL EFFUSION [None]
  - ATELECTASIS [None]
  - LUNG INFECTION PSEUDOMONAL [None]
  - METABOLIC ACIDOSIS [None]
  - HYPOTENSION [None]
